FAERS Safety Report 20187019 (Version 4)
Quarter: 2022Q2

REPORT INFORMATION
  Report Type: Report from Study
  Country: CN (occurrence: CN)
  Receive Date: 20211215
  Receipt Date: 20220427
  Transmission Date: 20220720
  Serious: Yes (Hospitalization)
  Sender: FDA-Public Use
  Company Number: CN-NOVARTISPH-NVSC2021CN286409

PATIENT
  Age: 10 Year
  Sex: Female
  Weight: 44.1 kg

DRUGS (7)
  1. FINGOLIMOD [Suspect]
     Active Substance: FINGOLIMOD
     Indication: Relapsing multiple sclerosis
     Dosage: UNK
     Route: 048
     Dates: start: 20210521
  2. IDEBENONE [Concomitant]
     Active Substance: IDEBENONE
     Indication: Supplementation therapy
     Dosage: UNK
     Route: 065
     Dates: start: 202102
  3. UBIDECARENONE [Concomitant]
     Active Substance: UBIDECARENONE
     Indication: Supplementation therapy
     Dosage: UNK
     Route: 065
     Dates: start: 20200616
  4. VITAMIN D [Concomitant]
     Active Substance: VITAMIN D NOS
     Indication: General physical condition
     Dosage: UNK
     Route: 065
     Dates: start: 20200616
  5. LYSINE [Concomitant]
     Active Substance: LYSINE
     Indication: General physical condition
     Dosage: UNK
     Route: 065
     Dates: start: 20201201
  6. OXCARBAZEPINE [Concomitant]
     Active Substance: OXCARBAZEPINE
     Indication: Epilepsy
     Dosage: UNK
     Route: 065
     Dates: start: 20210915
  7. VITAMIN B12 [Concomitant]
     Active Substance: CYANOCOBALAMIN
     Indication: General physical condition
     Dosage: UNK
     Route: 065
     Dates: start: 20201201

REACTIONS (1)
  - Tonsillitis [Recovered/Resolved]

NARRATIVE: CASE EVENT DATE: 20211209
